FAERS Safety Report 5801440-6 (Version None)
Quarter: 2008Q3

REPORT INFORMATION
  Report Type: 
  Country: None (occurrence: None)
  Receive Date: 20080703
  Receipt Date: 20080703
  Transmission Date: 20090109
  Serious: Yes (Hospitalization)
  Sender: FDA-Public Use
  Company Number: None

PATIENT
  Sex: Male
  Weight: 85 kg

DRUGS (1)
  1. TEMOZOLOMIDE [Suspect]
     Dosage: 5920 MG

REACTIONS (6)
  - HERPES ZOSTER [None]
  - HYPOTENSION [None]
  - NEUTROPENIA [None]
  - PULMONARY EMBOLISM [None]
  - SEPSIS [None]
  - THROMBOCYTOPENIA [None]
